FAERS Safety Report 9267335 (Version 1)
Quarter: 2013Q2

REPORT INFORMATION
  Report Type: Spontaneous
  Country: DE (occurrence: DE)
  Receive Date: 20130502
  Receipt Date: 20130502
  Transmission Date: 20140414
  Serious: Yes (Hospitalization)
  Sender: FDA-Public Use
  Company Number: DE-BANPHARM-20131222

PATIENT
  Age: 48 Year
  Sex: Female

DRUGS (10)
  1. IBUPROFEN UNKNOWN PRODUCT [Suspect]
     Route: 048
     Dates: start: 20130203
  2. ABILIFY [Suspect]
     Dosage: 5 MG, QD,
     Route: 048
     Dates: start: 20130122, end: 20130123
  3. ABILIFY [Suspect]
     Dosage: 8 MG, QD,
     Route: 048
     Dates: start: 20130124, end: 20130131
  4. ABILIFY [Suspect]
     Dosage: 15 MG, QD,
     Dates: start: 20130201, end: 20130205
  5. DIPIPERON [Suspect]
     Dosage: 40 MG, QD,
     Route: 048
     Dates: start: 20130204
  6. PANTOPRAZOL [Suspect]
     Dosage: 20 MG, QD,
     Dates: start: 20130205, end: 20130207
  7. TAVOR [Suspect]
     Dosage: 1 MG, QD,
     Route: 048
     Dates: start: 20130215
  8. L-THYROXIN [Concomitant]
     Dosage: 75 ?G,
     Route: 048
     Dates: start: 20130119
  9. PROMETHAZIN [Concomitant]
     Dosage: 25 MG, QD,
     Route: 048
     Dates: start: 20130123, end: 20130124
  10. PROMETHAZIN [Concomitant]
     Dosage: 50 MG, QD,
     Route: 048
     Dates: start: 20130128, end: 20130204

REACTIONS (1)
  - Dermatitis allergic [Not Recovered/Not Resolved]
